FAERS Safety Report 9379573 (Version 1)
Quarter: 2013Q3

REPORT INFORMATION
  Report Type: Spontaneous
  Country: US (occurrence: US)
  Receive Date: 20130702
  Receipt Date: 20130702
  Transmission Date: 20140515
  Serious: Yes (Congenital Anomaly)
  Sender: FDA-Public Use
  Company Number: US-FRI-1000046308

PATIENT
  Age: 2 Month
  Sex: Male

DRUGS (1)
  1. LEXAPRO [Suspect]
     Route: 064
     Dates: end: 20100701

REACTIONS (1)
  - Craniosynostosis [Unknown]
